FAERS Safety Report 17340367 (Version 1)
Quarter: 2020Q1

REPORT INFORMATION
  Report Type: Spontaneous
  Country: JP (occurrence: JP)
  Receive Date: 20200129
  Receipt Date: 20200129
  Transmission Date: 20200409
  Serious: Yes (Other)
  Sender: FDA-Public Use
  Company Number: JP-PFIZER INC-2020005289

PATIENT
  Age: 80 Year
  Sex: Female

DRUGS (18)
  1. CARBOCISTEINE [Concomitant]
     Active Substance: CARBOCYSTEINE
     Dosage: 500 MG, 3X/DAY AFTER BREAKFAST, LUNCH AND DINNER
     Route: 048
     Dates: start: 20191028
  2. MAGNESIUM OXIDE. [Concomitant]
     Active Substance: MAGNESIUM OXIDE
     Dosage: 1320 MG, DAILY
     Route: 048
     Dates: start: 20191028
  3. XELJANZ [Suspect]
     Active Substance: TOFACITINIB CITRATE
     Indication: RHEUMATOID ARTHRITIS
     Dosage: 5 MG, 1X/DAY
     Route: 048
     Dates: start: 20180709, end: 20191220
  4. SAMSCA [Concomitant]
     Active Substance: TOLVAPTAN
     Dosage: 15 MG, 1X/DAY AFTER BREAKFAST
     Route: 048
     Dates: start: 20191028
  5. LOXOPROFEN [Concomitant]
     Active Substance: LOXOPROFEN
     Dosage: 60 MG, 1X/DAY AFTER BREAKFAST
     Route: 048
     Dates: start: 20191028
  6. FUROSEMIDE. [Concomitant]
     Active Substance: FUROSEMIDE
     Dosage: 20 MG, 1X/DAY, AFTER BREAKFAST
     Route: 048
     Dates: start: 20191028
  7. CALONAL [Concomitant]
     Active Substance: ACETAMINOPHEN
     Dosage: 500 (UNKNOWN UNIT), 2X/DAY AFTER BREAKFAST AND DINNER
     Route: 048
     Dates: start: 20191028
  8. PYDOXAL [Concomitant]
     Active Substance: PYRIDOXAL
     Dosage: 10 MG, 1X/DAY, AFTER BREAKFAST
     Route: 048
     Dates: start: 20191028
  9. EDIROL [Concomitant]
     Active Substance: ELDECALCITOL
     Dosage: 0.75 UG, 1X/DAY, AFTER BREAKFAST
     Route: 048
     Dates: start: 20191028
  10. TAKECAB [Concomitant]
     Active Substance: VONOPRAZAN FUMURATE
     Dosage: 20 MG, 1X/DAY AFTER BREAKFAST
     Route: 048
     Dates: start: 20191028
  11. THYRADIN S [Concomitant]
     Active Substance: LEVOTHYROXINE SODIUM
     Dosage: 37.5 MG, 1X/DAY AFTER BREAKFAST
     Route: 048
     Dates: start: 20191028
  12. PREDONINE [Concomitant]
     Active Substance: PREDNISOLONE
     Dosage: 5 MG, 1X/DAY AFTER BREAKFAST
     Route: 048
     Dates: start: 20191028
  13. FUROSEMIDE. [Concomitant]
     Active Substance: FUROSEMIDE
     Dosage: 40 MG, 2X/DAY AFTER BREAKFAST AND LUNCH
     Route: 048
     Dates: start: 20191028
  14. ISCOTIN [Concomitant]
     Active Substance: ISONIAZID
     Dosage: 300 MG, 1X/DAY, AFTER BREAKFAST
     Route: 048
     Dates: start: 20191028
  15. BAKTAR [Concomitant]
     Active Substance: SULFAMETHOXAZOLE\TRIMETHOPRIM
     Dosage: 1 TABLET DAILY AT 3 TIMES WEEKLY, MONDAY, WEDNESDAY, FRIDAY
     Route: 048
     Dates: start: 20191028
  16. SELARA [Concomitant]
     Active Substance: EPLERENONE
     Dosage: 50 MG, 2X/DAY AFTER BREAKFAST AND DINNER
     Route: 048
     Dates: start: 20191028
  17. BELSOMRA [Concomitant]
     Active Substance: SUVOREXANT
     Dosage: 15 MG, 1X/DAY BEFORE SLEEP
     Route: 048
     Dates: start: 20191028
  18. TOARASET [Concomitant]
     Active Substance: ACETAMINOPHEN\TRAMADOL HYDROCHLORIDE
     Dosage: 1 TABLET, 2X/DAY AFTER BREAKFAST AND DINNER
     Route: 048
     Dates: start: 20191028

REACTIONS (1)
  - Pleural effusion [Recovering/Resolving]

NARRATIVE: CASE EVENT DATE: 20191220
